FAERS Safety Report 21121512 (Version 1)
Quarter: 2022Q3

REPORT INFORMATION
  Report Type: Spontaneous
  Country: GB (occurrence: GB)
  Receive Date: 20220722
  Receipt Date: 20220722
  Transmission Date: 20221026
  Serious: Yes (Hospitalization)
  Sender: FDA-Public Use
  Company Number: GB-009507513-2207GBR003535

PATIENT
  Sex: Female

DRUGS (2)
  1. ISENTRESS [Suspect]
     Active Substance: RALTEGRAVIR POTASSIUM
  2. NEVIRAPINE [Suspect]
     Active Substance: NEVIRAPINE
     Dosage: 400 MILLIGRAM

REACTIONS (1)
  - Adverse event [Unknown]
